FAERS Safety Report 4989530-1 (Version None)
Quarter: 2006Q2

REPORT INFORMATION
  Report Type: 
  Country: None (occurrence: None)
  Receive Date: 20060502
  Receipt Date: 20050413
  Transmission Date: 20061013
  Serious: Yes (Hospitalization)
  Sender: FDA-Public Use
  Company Number: US-MERCK-0504USA02181

PATIENT
  Age: 70 Year
  Sex: Male
  Weight: 91 kg

DRUGS (18)
  1. VIOXX [Suspect]
     Indication: PAIN IN EXTREMITY
     Route: 048
     Dates: start: 20030201, end: 20030901
  2. VIOXX [Suspect]
     Route: 048
  3. LASIX [Concomitant]
     Route: 065
  4. AMARYL [Concomitant]
     Route: 065
  5. AVANDIA [Concomitant]
     Route: 065
  6. ASPIRIN [Concomitant]
     Route: 065
  7. COREG [Concomitant]
     Route: 065
  8. DIOVAN [Concomitant]
     Route: 065
  9. POTASSIUM CHLORIDE [Concomitant]
     Route: 065
  10. AMIODARONE MSD [Concomitant]
     Route: 065
  11. XANAX [Concomitant]
     Route: 065
  12. FOLTX [Concomitant]
     Route: 065
  13. DILAUDID [Concomitant]
     Indication: PAIN
     Route: 065
  14. LANTUS [Concomitant]
     Route: 065
  15. HUMALOG [Concomitant]
     Route: 065
  16. COLACE [Concomitant]
     Route: 065
  17. TEQUIN [Concomitant]
     Route: 065
  18. COUMADIN [Suspect]
     Route: 065
     Dates: start: 20030907

REACTIONS (11)
  - ABDOMINAL HERNIA [None]
  - ANAEMIA [None]
  - BLOOD PRESSURE INCREASED [None]
  - CARDIAC FAILURE CONGESTIVE [None]
  - CARDIOMEGALY [None]
  - GASTROINTESTINAL HAEMORRHAGE [None]
  - PITTING OEDEMA [None]
  - PLEURAL EFFUSION [None]
  - PLEURAL HAEMORRHAGE [None]
  - PULMONARY EMBOLISM [None]
  - RENAL FAILURE ACUTE [None]
